FAERS Safety Report 4936707-7 (Version None)
Quarter: 2006Q1

REPORT INFORMATION
  Report Type: 
  Country: None (occurrence: None)
  Receive Date: 20060307
  Receipt Date: 20060228
  Transmission Date: 20060701
  Serious: Yes (Other)
  Sender: FDA-Public Use
  Company Number: US-JNJFOC-20051000842

PATIENT
  Sex: Female
  Weight: 79.38 kg

DRUGS (8)
  1. REMICADE [Suspect]
     Indication: RHEUMATOID ARTHRITIS
     Route: 042
  2. METHOTREXATE [Concomitant]
     Indication: RHEUMATOID ARTHRITIS
  3. PREDNISONE [Concomitant]
     Indication: RHEUMATOID ARTHRITIS
  4. CELEBREX [Concomitant]
  5. NEXIUM [Concomitant]
     Indication: GASTROINTESTINAL DISORDER
  6. NORVASC [Concomitant]
     Indication: HYPERTENSION
  7. DIOVAN [Concomitant]
     Indication: HYPERTENSION
  8. FOLIC ACID [Concomitant]

REACTIONS (3)
  - MACULAR HOLE [None]
  - MACULOPATHY [None]
  - SCOTOMA [None]
